FAERS Safety Report 16885668 (Version 2)
Quarter: 2019Q4

REPORT INFORMATION
  Report Type: Report from Study
  Country: US (occurrence: US)
  Receive Date: 20191004
  Receipt Date: 20191107
  Transmission Date: 20200122
  Serious: Yes (Death, Hospitalization, Other)
  Sender: FDA-Public Use
  Company Number: US-JNJFOC-20190914126

PATIENT
  Age: 66 Year
  Sex: Female
  Weight: 48 kg

DRUGS (22)
  1. TYLENOL [Concomitant]
     Active Substance: ACETAMINOPHEN
     Dosage: 650 MG, PRN EVERY 4 HOURS
  2. PROBIOTIC                          /06395501/ [Concomitant]
     Active Substance: BIFIDOBACTERIUM ANIMALIS LACTIS
     Dosage: UNK, TID
     Route: 048
  3. ONDANSETRON HCL [Concomitant]
     Active Substance: ONDANSETRON HYDROCHLORIDE
     Dosage: 4 MG, EVERY SIX HRS PRN
     Route: 048
  4. VANCOCIN [Concomitant]
     Active Substance: VANCOMYCIN HYDROCHLORIDE
     Dosage: 250 MG, QID
     Route: 048
  5. ROBAFEN                            /00048001/ [Concomitant]
     Dosage: 200 MG, EVERY 4 HOURS
     Route: 048
  6. MINERAL OIL. [Concomitant]
     Active Substance: MINERAL OIL
     Dosage: ONE ENEMA, QD
     Route: 054
  7. KEPPRA [Concomitant]
     Active Substance: LEVETIRACETAM
     Dosage: 500 MG, EVERY 12 HRS
     Route: 048
  8. NORVASC [Concomitant]
     Active Substance: AMLODIPINE BESYLATE
     Dosage: 5 MG, QD
     Route: 048
  9. FOLIC ACID. [Concomitant]
     Active Substance: FOLIC ACID
     Dosage: 1 MG, QD
     Route: 048
     Dates: end: 20190801
  10. ZOCOR [Concomitant]
     Active Substance: SIMVASTATIN
     Dosage: 20 MG, UNK
     Route: 048
  11. CALCIUM [Concomitant]
     Active Substance: CALCIUM
     Dosage: 500 MG, BID
  12. VANTIN                             /01043502/ [Concomitant]
     Dosage: 400 MG, BID
     Route: 048
  13. MAGNESIUM HYDROXIDE. [Concomitant]
     Active Substance: MAGNESIUM HYDROXIDE
     Dosage: 30 ML, QD
     Route: 048
  14. IMBRUVICA [Suspect]
     Active Substance: IBRUTINIB
     Indication: CHRONIC LYMPHOCYTIC LEUKAEMIA
     Dosage: 280 MG, QD
     Route: 048
     Dates: start: 20190809, end: 20190909
  15. VITAMIN D3 [Concomitant]
     Active Substance: CHOLECALCIFEROL
     Dosage: 1000 UNIT, QD
     Route: 048
  16. FLOMAX [Concomitant]
     Active Substance: TAMSULOSIN HYDROCHLORIDE
     Dosage: 0.4 MG, QD
     Route: 048
     Dates: end: 20190801
  17. DULCOLAX (BISACODYL) [Concomitant]
     Active Substance: BISACODYL
     Dosage: 10 MG, QD
     Route: 054
  18. DECADRON [Concomitant]
     Active Substance: DEXAMETHASONE
     Dosage: 4 MG, TID
     Route: 048
  19. LORAZEPAM. [Concomitant]
     Active Substance: LORAZEPAM
     Dosage: 0.5 MG, EVERY 12 HRS
     Route: 048
  20. PROTONIX [Concomitant]
     Active Substance: PANTOPRAZOLE SODIUM
     Dosage: 40 MG, QD
     Route: 048
  21. ZYLOPRIM [Concomitant]
     Active Substance: ALLOPURINOL
     Dosage: 100 MG, TID
     Route: 048
  22. DRONABINOL. [Concomitant]
     Active Substance: DRONABINOL
     Dosage: 2.5 MG, BID
     Route: 048

REACTIONS (9)
  - Off label use [Unknown]
  - Clostridium difficile colitis [Unknown]
  - Disease progression [Fatal]
  - Metabolic encephalopathy [Unknown]
  - Acute kidney injury [Recovered/Resolved]
  - Escherichia bacteraemia [Unknown]
  - Product use issue [Unknown]
  - Neutropenic sepsis [Fatal]
  - Pneumonia [Unknown]

NARRATIVE: CASE EVENT DATE: 20190809
